FAERS Safety Report 18002099 (Version 1)
Quarter: 2020Q3

REPORT INFORMATION
  Report Type: Spontaneous
  Country: US (occurrence: US)
  Receive Date: 20200709
  Receipt Date: 20200709
  Transmission Date: 20201103
  Serious: No
  Sender: FDA-Public Use
  Company Number: US-PFIZER INC-2020263311

PATIENT
  Age: 76 Year
  Sex: Female
  Weight: 55.33 kg

DRUGS (5)
  1. METOPROLOL TARTRATE. [Concomitant]
     Active Substance: METOPROLOL TARTRATE
     Dosage: UNK (METOPROLOL TARTRATE 100 MG TABLET)
  2. CALCIUM +D3 [Concomitant]
     Active Substance: CALCIUM\CHOLECALCIFEROL
     Dosage: UNK (CALCIUM + D3 600 MG?500 TABLET ER)
  3. LETROZOLE. [Concomitant]
     Active Substance: LETROZOLE
     Dosage: UNK (LETROZOLE 2.5 MG TABLET)
  4. IBRANCE [Suspect]
     Active Substance: PALBOCICLIB
     Indication: BREAST CANCER FEMALE
     Dosage: 75 MG, CYCLIC (1 DAILY FOR 21 DAYS)
     Route: 048
     Dates: start: 2018
  5. XGEVA [Concomitant]
     Active Substance: DENOSUMAB
     Dosage: UNK (XGEVA 120 MG/1.7 VIAL)

REACTIONS (2)
  - Fatigue [Unknown]
  - Asthenia [Unknown]

NARRATIVE: CASE EVENT DATE: 2018
